FAERS Safety Report 6142852-3 (Version None)
Quarter: 2009Q2

REPORT INFORMATION
  Report Type: 
  Country: None (occurrence: None)
  Receive Date: 20090403
  Receipt Date: 20090330
  Transmission Date: 20091009
  Serious: Yes (Hospitalization, Other)
  Sender: FDA-Public Use
  Company Number: DE-AMGEN-UK333350

PATIENT
  Sex: Female
  Weight: 48 kg

DRUGS (10)
  1. NEULASTA [Suspect]
     Indication: CHEMOTHERAPY
     Route: 058
     Dates: start: 20090205
  2. BENDAMUSTINE [Concomitant]
     Route: 042
     Dates: start: 20090202, end: 20090202
  3. RITUXIMAB [Concomitant]
     Route: 042
     Dates: start: 20090202, end: 20090202
  4. SPIRONOLACTONE [Concomitant]
     Route: 048
  5. TORSEMIDE [Concomitant]
     Route: 048
  6. PROGRAF [Concomitant]
     Route: 048
  7. COTRIM DS [Concomitant]
     Route: 048
  8. LANTUS [Concomitant]
     Route: 058
  9. ACTRAPID INSULIN NOVO [Concomitant]
     Route: 058
  10. PANTOZOL [Concomitant]
     Route: 048

REACTIONS (5)
  - BONE PAIN [None]
  - LEUKOCYTOSIS [None]
  - NAUSEA [None]
  - OVERDOSE [None]
  - VOMITING [None]
